FAERS Safety Report 5280164-0 (Version None)
Quarter: 2007Q1

REPORT INFORMATION
  Report Type: 
  Country: None (occurrence: None)
  Receive Date: 20070326
  Receipt Date: 20070326
  Transmission Date: 20070707
  Serious: Yes (Life-Threatening, Hospitalization, Other)
  Sender: FDA-Public Use
  Company Number: None

PATIENT
  Sex: Female
  Weight: 24.9478 kg

DRUGS (3)
  1. ATIVAN [Suspect]
     Indication: AGITATION
     Dosage: 4 DOSES IN 5 HRS
     Dates: start: 20070320, end: 20070321
  2. ATIVAN [Suspect]
     Indication: ANXIETY
     Dosage: 4 DOSES IN 5 HRS
     Dates: start: 20070320, end: 20070321
  3. ATIVAN [Suspect]
     Indication: POST-TRAUMATIC STRESS DISORDER
     Dosage: 4 DOSES IN 5 HRS
     Dates: start: 20070320, end: 20070321

REACTIONS (9)
  - ABNORMAL BEHAVIOUR [None]
  - AGGRESSION [None]
  - AGITATION [None]
  - CONDITION AGGRAVATED [None]
  - CRYING [None]
  - FAECAL INCONTINENCE [None]
  - GAIT DISTURBANCE [None]
  - NERVOUSNESS [None]
  - SCREAMING [None]
